FAERS Safety Report 4887365-1 (Version None)
Quarter: 2006Q1

REPORT INFORMATION
  Report Type: 
  Country: None (occurrence: None)
  Receive Date: 20060123
  Receipt Date: 20060113
  Transmission Date: 20060701
  Serious: Yes (Hospitalization)
  Sender: FDA-Public Use
  Company Number: FR-JNJFOC-20060100988

PATIENT
  Age: 72 Year
  Sex: Male

DRUGS (10)
  1. REMICADE [Suspect]
     Indication: POLYARTHRITIS
     Route: 042
  2. TRAMADOL HCL [Concomitant]
  3. CORTANCYL [Concomitant]
     Indication: POLYARTHRITIS
     Route: 048
     Dates: start: 20040901
  4. LEVOTHYROXINE SODIUM [Concomitant]
     Route: 048
  5. TRIVASTAL [Concomitant]
     Route: 048
  6. DIFFU K [Concomitant]
     Route: 048
     Dates: start: 20040901
  7. IMOVANE [Concomitant]
     Route: 048
  8. INIPOMP [Concomitant]
     Route: 065
  9. IDEOS [Concomitant]
     Route: 065
  10. IDEOS [Concomitant]
     Indication: OSTEOPOROSIS
     Route: 065

REACTIONS (2)
  - ARTHRITIS BACTERIAL [None]
  - SALMONELLA SEPSIS [None]
